FAERS Safety Report 11663953 (Version 1)
Quarter: 2015Q4

REPORT INFORMATION
  Report Type: Spontaneous
  Country: US (occurrence: None)
  Receive Date: 20151026
  Receipt Date: 20151026
  Transmission Date: 20160304
  Serious: Yes (Other)
  Sender: FDA-Public Use
  Company Number: None

PATIENT
  Age: 45 Year
  Sex: Female
  Weight: 99.79 kg

DRUGS (6)
  1. DULERA [Suspect]
     Active Substance: FORMOTEROL FUMARATE DIHYDRATE\MOMETASONE FUROATE
     Indication: NASOPHARYNGITIS
     Dosage: 1 PUFF ?TWICE DAILY?TAKEN BY MOUTH
     Route: 048
     Dates: start: 20151021, end: 20151022
  2. SYNTHROID [Concomitant]
     Active Substance: LEVOTHYROXINE SODIUM
  3. LEVOFLOXACIN. [Concomitant]
     Active Substance: LEVOFLOXACIN
  4. PREDNISONE. [Concomitant]
     Active Substance: PREDNISONE
  5. VITAMINS [Concomitant]
     Active Substance: VITAMINS
  6. DULERA [Suspect]
     Active Substance: FORMOTEROL FUMARATE DIHYDRATE\MOMETASONE FUROATE
     Indication: WHEEZING
     Dosage: 1 PUFF ?TWICE DAILY?TAKEN BY MOUTH
     Route: 048
     Dates: start: 20151021, end: 20151022

REACTIONS (1)
  - Dyspnoea [None]

NARRATIVE: CASE EVENT DATE: 20151022
